FAERS Safety Report 13122388 (Version 1)
Quarter: 2017Q1

REPORT INFORMATION
  Report Type: Spontaneous
  Country: US (occurrence: US)
  Receive Date: 20170117
  Receipt Date: 20170117
  Transmission Date: 20170428
  Serious: Yes (Death)
  Sender: FDA-Public Use
  Company Number: PHHY2017US001756

PATIENT
  Age: 10 Year
  Sex: Female

DRUGS (3)
  1. CRIZOTINIB [Suspect]
     Active Substance: CRIZOTINIB
     Indication: NON-RENAL CELL CARCINOMA OF KIDNEY
     Dosage: 280 MG/M2, BID
     Route: 048
  2. TOPOTECAN HYDROCHLORIDE. [Suspect]
     Active Substance: TOPOTECAN HYDROCHLORIDE
     Indication: NON-RENAL CELL CARCINOMA OF KIDNEY
     Dosage: 0.75 MG/M2, UNK
     Route: 065
  3. CYCLOPHOSPHAMIDE. [Suspect]
     Active Substance: CYCLOPHOSPHAMIDE
     Indication: NON-RENAL CELL CARCINOMA OF KIDNEY
     Dosage: 250 MG/M2, UNK
     Route: 065

REACTIONS (4)
  - Non-renal cell carcinoma of kidney [Fatal]
  - Malignant neoplasm progression [Fatal]
  - Product use issue [Unknown]
  - Respiratory failure [Fatal]
